FAERS Safety Report 6177536-9 (Version None)
Quarter: 2009Q2

REPORT INFORMATION
  Report Type: 
  Country: None (occurrence: None)
  Receive Date: 20090504
  Receipt Date: 20090424
  Transmission Date: 20091009
  Serious: Yes (Life-Threatening, Hospitalization)
  Sender: FDA-Public Use
  Company Number: AU-PFIZER INC-2008063577

PATIENT

DRUGS (18)
  1. BLINDED *PLACEBO [Suspect]
     Indication: COLORECTAL CANCER
     Dosage: 37.5 MG, 1X/DAY
     Route: 048
     Dates: start: 20080506, end: 20080722
  2. BLINDED SUNITINIB MALATE [Suspect]
     Indication: COLORECTAL CANCER
     Dosage: 37.5 MG, 1X/DAY
     Route: 048
     Dates: start: 20080506, end: 20080722
  3. IRINOTECAN HCL [Suspect]
     Indication: COLORECTAL CANCER
     Dosage: Q 2 WEEKS
     Route: 042
     Dates: start: 20080506, end: 20080714
  4. FLUOROURACIL [Suspect]
     Indication: COLORECTAL CANCER
     Dosage: Q 2 WEEKS
     Route: 042
     Dates: start: 20080506, end: 20080716
  5. FLUOROURACIL [Suspect]
     Dosage: EVERY TWO WEEKS
     Route: 042
     Dates: start: 20080507, end: 20080725
  6. LEUCOVORIN CALCIUM [Suspect]
     Indication: COLORECTAL CANCER
     Dosage: Q 2 WEEKS
     Route: 042
     Dates: start: 20080506, end: 20080714
  7. CLEXANE [Suspect]
     Dates: start: 20080412, end: 20080724
  8. PARACETAMOL [Concomitant]
     Dates: start: 20080201
  9. NULYTELY [Concomitant]
     Dates: start: 20080505
  10. DEXAMETHASONE TAB [Concomitant]
     Dates: start: 20080506
  11. ALL OTHER THERAPEUTIC PRODUCTS [Concomitant]
     Dates: start: 20080506
  12. TEMAZE [Concomitant]
     Dates: start: 20080508
  13. LOPERAMIDE HCL [Concomitant]
     Dates: start: 20080511
  14. MYLANTA [Concomitant]
     Dates: start: 20080514
  15. ZANTAC [Concomitant]
     Dates: start: 20080514
  16. DOMPERIDONE [Concomitant]
     Dates: start: 20080614
  17. SOMAC [Concomitant]
     Dates: start: 20080614
  18. AMOXICILLIN [Concomitant]
     Dates: start: 20080608, end: 20080712

REACTIONS (2)
  - DIARRHOEA [None]
  - GASTROINTESTINAL HAEMORRHAGE [None]
